FAERS Safety Report 7720080-5 (Version None)
Quarter: 2011Q3

REPORT INFORMATION
  Report Type: 
  Country: None (occurrence: None)
  Receive Date: 20110824
  Receipt Date: 20110809
  Transmission Date: 20111222
  Serious: No
  Sender: FDA-Public Use
  Company Number: JHP201100369

PATIENT
  Age: 75 Year
  Sex: Male
  Weight: 77 kg

DRUGS (9)
  1. VOLTAREN (DICLOFENAC EPOLAMINUM) TAPE [Concomitant]
  2. DANTRIUM [Suspect]
     Dosage: 50 MG, TID, ORAL
     Route: 048
     Dates: start: 20070403
  3. BONALON (ALENDRONATE SODIUM) [Concomitant]
  4. ADETPHOS (ADENOSINE TRIPHOSPHATE, DISODIUM SALT) [Concomitant]
  5. TERNELIN (TIZANIDINE HYDROCHLORIDE) TABLET [Concomitant]
  6. OPALMON (LIMAPROST) [Concomitant]
  7. LOXONIN (LOXOPROFEN SODIUM) [Concomitant]
  8. NEUROTROPIN (ORGAN LYSATE, STANDARDIZED) TABLET [Concomitant]
  9. METHYCOBAL (MECOBALAMIN) TABLET [Concomitant]

REACTIONS (8)
  - NERVOUS SYSTEM DISORDER [None]
  - ALTERED STATE OF CONSCIOUSNESS [None]
  - SYNCOPE [None]
  - BLOOD PRESSURE SYSTOLIC INCREASED [None]
  - NEUROLOGICAL SYMPTOM [None]
  - ADRENAL MASS [None]
  - PALLOR [None]
  - AORTIC VALVE INCOMPETENCE [None]
